FAERS Safety Report 6098586-7 (Version None)
Quarter: 2009Q1

REPORT INFORMATION
  Report Type: 
  Country: None (occurrence: None)
  Receive Date: 20090302
  Receipt Date: 20090220
  Transmission Date: 20090719
  Serious: Yes (Death)
  Sender: FDA-Public Use
  Company Number: JP-ABBOTT-09P-087-0503007-00

PATIENT
  Age: 90 Year
  Sex: Male
  Weight: 43.5 kg

DRUGS (7)
  1. LEUPLIN SR FOR INJECTION 11.25 MG [Suspect]
     Indication: PROSTATE CANCER STAGE IV
     Route: 058
     Dates: start: 20070117, end: 20070926
  2. CASODEX [Concomitant]
     Indication: PROSTATE CANCER STAGE IV
     Route: 048
     Dates: start: 20070117, end: 20071206
  3. CEPHADOL [Concomitant]
     Indication: VERTIGO
     Route: 048
  4. BERIZYM [Concomitant]
     Indication: GASTRITIS
     Route: 048
  5. MUCOSERUM [Concomitant]
     Indication: BRONCHITIS CHRONIC
     Route: 048
  6. SOLANAX [Concomitant]
     Indication: PSYCHOSOMATIC DISEASE
     Route: 048
  7. CONIEL [Concomitant]
     Indication: HYPERTENSION
     Route: 048

REACTIONS (3)
  - PNEUMONIA [None]
  - PROSTATE CANCER [None]
  - PROSTATIC SPECIFIC ANTIGEN INCREASED [None]
